FAERS Safety Report 4587310-2 (Version None)
Quarter: 2005Q1

REPORT INFORMATION
  Report Type: 
  Country: None (occurrence: None)
  Receive Date: 20050215
  Receipt Date: 20050203
  Transmission Date: 20050727
  Serious: Yes (Life-Threatening, Hospitalization)
  Sender: FDA-Public Use
  Company Number: 2004GB03012

PATIENT
  Age: 64 Year
  Sex: Female

DRUGS (7)
  1. GEFITINIB [Suspect]
     Indication: BREAST CANCER
     Dosage: 250 MG QD PO
     Route: 048
     Dates: start: 20041108, end: 20041202
  2. ARIMIDEX [Suspect]
     Indication: BREAST CANCER
     Dosage: 1 MG DAILY PO
     Route: 048
     Dates: start: 20041021
  3. ZD1839 PLACEBO [Suspect]
     Indication: BREAST CANCER
     Dates: start: 20041021, end: 20041108
  4. CLOBETASOL [Concomitant]
  5. GELOFUSINE [Concomitant]
  6. HEPARIN [Concomitant]
  7. NORMAL SALINE [Concomitant]

REACTIONS (4)
  - CIRCULATORY COLLAPSE [None]
  - DEEP VEIN THROMBOSIS [None]
  - GROIN PAIN [None]
  - RETROPERITONEAL HAEMORRHAGE [None]
